FAERS Safety Report 8257230-0 (Version None)
Quarter: 2012Q2

REPORT INFORMATION
  Report Type: 
  Country: None (occurrence: None)
  Receive Date: 20120403
  Receipt Date: 20120327
  Transmission Date: 20120825
  Serious: Yes (Other)
  Sender: FDA-Public Use
  Company Number: US-FRI-1000029386

PATIENT
  Age: 91 Year
  Sex: Female

DRUGS (2)
  1. DALIRESP [Suspect]
     Dates: start: 20120301, end: 20120301
  2. DUONEB [Concomitant]
     Dates: end: 20120301

REACTIONS (2)
  - VENTRICULAR TACHYCARDIA [None]
  - INSOMNIA [None]
